FAERS Safety Report 16986395 (Version 2)
Quarter: 2019Q4

REPORT INFORMATION
  Report Type: Spontaneous
  Country: FR (occurrence: FR)
  Receive Date: 20191101
  Receipt Date: 20191220
  Transmission Date: 20200122
  Serious: Yes (Other)
  Sender: FDA-Public Use
  Company Number: FR-US-PROVELL PHARMACEUTICALS LLC-9075635

PATIENT
  Age: 59 Year
  Sex: Female
  Weight: 90 kg

DRUGS (5)
  1. VITAMIN D                          /00107901/ [Concomitant]
     Active Substance: ERGOCALCIFEROL
     Indication: PRODUCT USED FOR UNKNOWN INDICATION
     Dosage: TIME TO TIME
  2. INEXIUM                            /01479303/ [Concomitant]
     Active Substance: ESOMEPRAZOLE
     Indication: ULCER
     Dosage: 40 (UNSPECIFIED UNITS)
  3. VITAMIN B12 [Concomitant]
     Active Substance: CYANOCOBALAMIN
     Indication: PRODUCT USED FOR UNKNOWN INDICATION
     Dosage: ACCORDING TO DOSAGES (UNSPECIFIED)
  4. LEVOTHYROX 75 NF [Suspect]
     Active Substance: LEVOTHYROXINE SODIUM
     Indication: HYPOTHYROIDISM
     Dosage: 75 (UNSPECIFIED UNITS)
     Dates: start: 201703
  5. LEVOTHYROX 75 NF [Suspect]
     Active Substance: LEVOTHYROXINE SODIUM
     Dosage: DOSE INCREASED?100 (UNSPECIFIED UNITS)
     Dates: start: 20190226

REACTIONS (26)
  - Amyotrophy [Unknown]
  - Nausea [Not Recovered/Not Resolved]
  - Central obesity [Unknown]
  - Anosmia [Unknown]
  - Asthenia [Unknown]
  - Blood thyroid stimulating hormone increased [Unknown]
  - Mitral valve incompetence [Unknown]
  - Blood cholesterol increased [Not Recovered/Not Resolved]
  - Red blood cell sedimentation rate increased [Recovered/Resolved]
  - Hyperhidrosis [Not Recovered/Not Resolved]
  - Muscle spasms [Not Recovered/Not Resolved]
  - Platelet count decreased [Not Recovered/Not Resolved]
  - Blood triglycerides increased [Not Recovered/Not Resolved]
  - Carpal tunnel syndrome [Unknown]
  - Headache [Unknown]
  - Neutrophil count decreased [Recovered/Resolved]
  - Alopecia [Not Recovered/Not Resolved]
  - Hypotension [Not Recovered/Not Resolved]
  - White blood cell count decreased [Recovered/Resolved]
  - Dry mouth [Unknown]
  - Constipation [Unknown]
  - Insomnia [Not Recovered/Not Resolved]
  - Urinary tract infection [Unknown]
  - Fatigue [Not Recovered/Not Resolved]
  - Feeling cold [Recovering/Resolving]
  - Paraesthesia [Not Recovered/Not Resolved]

NARRATIVE: CASE EVENT DATE: 2017
